FAERS Safety Report 8860490 (Version 2)
Quarter: 2012Q4

REPORT INFORMATION
  Report Type: 
  Country: CH (occurrence: CH)
  Receive Date: 20121025
  Receipt Date: 20121128
  Transmission Date: 20130627
  Serious: Yes (Hospitalization, Other)
  Sender: FDA-Public Use
  Company Number: CH-ELI_LILLY_AND_COMPANY-CH201210005759

PATIENT
  Age: 71 Year
  Sex: Female
  Weight: 57 kg

DRUGS (2)
  1. EFIENT [Suspect]
     Indication: STENT PLACEMENT
     Dosage: 60 mg, single
     Dates: start: 20101020, end: 20101020
  2. EFIENT [Suspect]
     Dosage: 10 mg, qd
     Route: 048
     Dates: start: 20101021

REACTIONS (2)
  - Coronary artery restenosis [Recovered/Resolved]
  - Angina unstable [Recovered/Resolved]
